FAERS Safety Report 9257007 (Version 2)
Quarter: 2013Q2

REPORT INFORMATION
  Report Type: Spontaneous
  Country: US (occurrence: US)
  Receive Date: 20130426
  Receipt Date: 20130603
  Transmission Date: 20140414
  Serious: Yes (Death, Life-Threatening, Other)
  Sender: FDA-Public Use
  Company Number: US-ELI_LILLY_AND_COMPANY-US201304005458

PATIENT
  Age: 75 Year
  Sex: Female

DRUGS (1)
  1. ZYPREXA [Suspect]
     Indication: PSYCHOTIC DISORDER
     Dosage: 1 DF, QD
     Route: 048

REACTIONS (5)
  - Cerebrovascular accident [Fatal]
  - Cerebrovascular accident [Unknown]
  - Hemiparesis [Unknown]
  - Aphasia [Unknown]
  - Weight increased [Unknown]
